FAERS Safety Report 5700533-1 (Version None)
Quarter: 2008Q2

REPORT INFORMATION
  Report Type: 
  Country: None (occurrence: None)
  Receive Date: 20080410
  Receipt Date: 20080401
  Transmission Date: 20081010
  Serious: Yes (Other)
  Sender: FDA-Public Use
  Company Number: SE-JNJFOC-20080401537

PATIENT
  Age: 29 Year
  Sex: Female

DRUGS (7)
  1. CONCERTA [Suspect]
     Indication: DRUG USE FOR UNKNOWN INDICATION
  2. HALDOL [Concomitant]
     Route: 065
  3. LYRICA [Concomitant]
     Route: 065
  4. XANOR [Concomitant]
     Route: 065
  5. ZOLPIDEM TARTRATE [Concomitant]
     Route: 065
  6. PROPAVAN [Concomitant]
     Route: 065
  7. FLUOXETINE [Concomitant]
     Route: 065

REACTIONS (1)
  - MUSCLE SPASMS [None]
